FAERS Safety Report 5261191-6 (Version None)
Quarter: 2007Q1

REPORT INFORMATION
  Report Type: 
  Country: None (occurrence: None)
  Receive Date: 20070309
  Receipt Date: 20070227
  Transmission Date: 20070707
  Serious: Yes (Death)
  Sender: FDA-Public Use
  Company Number: JP-PFIZER INC-2007013916

PATIENT
  Age: 78 Year
  Sex: Male

DRUGS (1)
  1. VFEND [Suspect]
     Indication: ASPERGILLOSIS
     Dosage: DAILY DOSE:400MG
     Route: 042

REACTIONS (3)
  - DEATH [None]
  - HYPERKALAEMIA [None]
  - HYPONATRAEMIA [None]
